FAERS Safety Report 13922728 (Version 2)
Quarter: 2017Q3

REPORT INFORMATION
  Report Type: Report from Study
  Country: None (occurrence: US)
  Receive Date: 20170830
  Receipt Date: 20170906
  Transmission Date: 20171127
  Serious: Yes (Death)
  Sender: FDA-Public Use
  Company Number: US-ABBVIE-17P-163-2086668-00

PATIENT
  Sex: Female

DRUGS (3)
  1. BENDAMUSTINE [Concomitant]
     Active Substance: BENDAMUSTINE
     Indication: CHEMOTHERAPY
  2. VENCLEXTA [Suspect]
     Active Substance: VENETOCLAX
     Indication: PRODUCT USED FOR UNKNOWN INDICATION
     Route: 048
     Dates: start: 20160523
  3. GAZYVA [Concomitant]
     Active Substance: OBINUTUZUMAB
     Indication: CHEMOTHERAPY

REACTIONS (1)
  - Neoplasm malignant [Fatal]
